FAERS Safety Report 14756284 (Version 1)
Quarter: 2018Q2

REPORT INFORMATION
  Report Type: Spontaneous
  Country: US (occurrence: US)
  Receive Date: 20180407
  Receipt Date: 20180407
  Transmission Date: 20180711
  Serious: Yes (Hospitalization)
  Sender: FDA-Public Use
  Company Number: None

PATIENT
  Age: 46 Year
  Sex: Female
  Weight: 90.54 kg

DRUGS (2)
  1. ASPIRIN. [Suspect]
     Active Substance: ASPIRIN
     Dates: end: 20180401
  2. PLACEBO [Suspect]
     Active Substance: UNSPECIFIED INGREDIENT

REACTIONS (4)
  - Febrile neutropenia [None]
  - Myalgia [None]
  - Fatigue [None]
  - Influenza B virus test positive [None]

NARRATIVE: CASE EVENT DATE: 20180329
